FAERS Safety Report 4435338-5 (Version None)
Quarter: 2004Q3

REPORT INFORMATION
  Report Type: 
  Country: None (occurrence: None)
  Receive Date: 20040827
  Receipt Date: 20040823
  Transmission Date: 20050211
  Serious: Yes (Other)
  Sender: FDA-Public Use
  Company Number: US-JNJFOC-20040302253

PATIENT
  Sex: Female

DRUGS (9)
  1. DURAGESIC [Suspect]
     Route: 062
     Dates: start: 20031101
  2. DURAGESIC [Suspect]
     Route: 062
     Dates: start: 20031101
  3. DURAGESIC [Suspect]
     Route: 062
     Dates: start: 20031101
  4. DURAGESIC [Suspect]
     Route: 062
     Dates: start: 20031101
  5. SYNTHROID [Concomitant]
     Indication: HYPOTHYROIDISM
     Route: 049
  6. XANAX [Concomitant]
     Route: 049
  7. LEXIPRO [Concomitant]
     Indication: DEPRESSION
     Route: 049
  8. DIOVAN [Concomitant]
     Indication: HYPERTENSION
     Route: 049
  9. TRAZODONE [Concomitant]
     Indication: INSOMNIA
     Route: 049

REACTIONS (6)
  - DIABETES MELLITUS NON-INSULIN-DEPENDENT [None]
  - NAUSEA [None]
  - PHARMACEUTICAL PRODUCT COMPLAINT [None]
  - SACRAL PAIN [None]
  - THERAPEUTIC RESPONSE DECREASED [None]
  - VOMITING [None]
